FAERS Safety Report 4379574-5 (Version None)
Quarter: 2004Q2

REPORT INFORMATION
  Report Type: 
  Country: None (occurrence: None)
  Receive Date: 20040415
  Receipt Date: 20040207
  Transmission Date: 20050107
  Serious: No
  Sender: FDA-Public Use
  Company Number: 2004-02-0768

PATIENT
  Age: 11 Year
  Sex: Female
  Weight: 29.4838 kg

DRUGS (1)
  1. CLARINEX [Suspect]
     Dosage: 5 MG ORAL
     Route: 048

REACTIONS (2)
  - NERVOUSNESS [None]
  - PANIC ATTACK [None]
